FAERS Safety Report 6691759-1 (Version None)
Quarter: 2010Q2

REPORT INFORMATION
  Report Type: 
  Country: None (occurrence: None)
  Receive Date: 20100422
  Receipt Date: 20090302
  Transmission Date: 20101027
  Serious: No
  Sender: FDA-Public Use
  Company Number: US-ASTRAZENECA-2009UW05682

PATIENT
  Age: 57 Year
  Sex: Male
  Weight: 77.1 kg

DRUGS (1)
  1. TOPROL-XL [Suspect]
     Indication: HYPERTENSION
     Dosage: 100 MG DAILY, REDUCED TO 1/2 TABLET THEN 1/3 TABLET
     Route: 048
     Dates: start: 20080201

REACTIONS (8)
  - DIZZINESS [None]
  - DRY MOUTH [None]
  - HEADACHE [None]
  - LETHARGY [None]
  - MUSCULAR WEAKNESS [None]
  - PALPITATIONS [None]
  - SENSATION OF HEAVINESS [None]
  - VISION BLURRED [None]
